FAERS Safety Report 6414587-0 (Version None)
Quarter: 2009Q4

REPORT INFORMATION
  Report Type: 
  Country: None (occurrence: None)
  Receive Date: 20091026
  Receipt Date: 20091016
  Transmission Date: 20100525
  Serious: Yes (Hospitalization)
  Sender: FDA-Public Use
  Company Number: PL-ABBOTT-09P-129-0599858-00

PATIENT
  Sex: Female
  Weight: 60 kg

DRUGS (7)
  1. HUMIRA [Suspect]
     Indication: COLITIS ULCERATIVE
     Route: 058
     Dates: start: 20090401
  2. ISOPRINOSINE [Concomitant]
     Indication: PHARYNGITIS
     Dates: start: 20090623, end: 20090710
  3. BIOPAROX [Concomitant]
     Indication: UPPER RESPIRATORY TRACT INFECTION
     Dates: start: 20090428, end: 20090504
  4. BIOPAROX [Concomitant]
     Indication: PHARYNGITIS
     Dates: start: 20090722, end: 20090805
  5. XORIMAX [Concomitant]
     Indication: PHARYNGITIS
     Dates: start: 20090505, end: 20090512
  6. SULFASALAZIN EN [Concomitant]
     Indication: COLITIS ULCERATIVE
     Dates: start: 20000101
  7. MERCAPTOPURINE [Concomitant]
     Indication: COLITIS ULCERATIVE
     Dates: start: 20050101, end: 20090623

REACTIONS (2)
  - BRONCHIECTASIS [None]
  - BRONCHITIS [None]
